FAERS Safety Report 9052925 (Version 1)
Quarter: 2013Q1

REPORT INFORMATION
  Report Type: Report from Study
  Country: US (occurrence: US)
  Receive Date: 20130207
  Receipt Date: 20130207
  Transmission Date: 20140127
  Serious: Yes (Hospitalization, Other)
  Sender: FDA-Public Use
  Company Number: US-009507513-1302USA002029

PATIENT
  Age: 6 None
  Sex: Male
  Weight: 24.3 kg

DRUGS (4)
  1. VORINOSTAT [Suspect]
     Indication: NEUROBLASTOMA
     Dosage: 200 MG, DAILY
     Route: 048
     Dates: start: 20121203, end: 20121217
  2. IOBENGUANE I 131 [Suspect]
     Indication: NEUROBLASTOMA
     Dosage: 437 MICROCI, ONCE
     Dates: start: 20121205, end: 20121205
  3. NEUPOGEN [Concomitant]
     Dosage: 112.5 MICROGRAM, DAILY
     Route: 042
     Dates: start: 20121220
  4. POTASSIUM IODIDE [Concomitant]
     Dosage: 24 MG, DAILY
     Route: 048
     Dates: start: 20121212

REACTIONS (6)
  - Haemorrhage [Unknown]
  - Stem cell transplant [None]
  - Autoimmune thrombocytopenia [None]
  - Tongue haemorrhage [None]
  - Blood blister [None]
  - Contusion [None]
